FAERS Safety Report 6997727-4 (Version None)
Quarter: 2010Q3

REPORT INFORMATION
  Report Type: 
  Country: None (occurrence: None)
  Receive Date: 20100918
  Receipt Date: 20091123
  Transmission Date: 20110219
  Serious: No
  Sender: FDA-Public Use
  Company Number: US-WYE-H12314209

PATIENT
  Sex: Female
  Weight: 55.84 kg

DRUGS (1)
  1. PRISTIQ [Suspect]
     Indication: ANXIETY
     Dosage: ^TOOK HALF OF A PRISTIQ TABLET AS DIRECTED^
     Route: 048
     Dates: start: 20091120, end: 20091120

REACTIONS (1)
  - HYPOAESTHESIA FACIAL [None]
